FAERS Safety Report 9249217 (Version 1)
Quarter: 2013Q2

REPORT INFORMATION
  Report Type: Spontaneous
  Country: FR (occurrence: FR)
  Receive Date: 20130423
  Receipt Date: 20130423
  Transmission Date: 20140414
  Serious: Yes (Death, Other)
  Sender: FDA-Public Use
  Company Number: FR-TEVA-398072ISR

PATIENT
  Age: 68 Year
  Sex: Male

DRUGS (11)
  1. HOLOXAN [Suspect]
     Indication: CENTRAL NERVOUS SYSTEM LYMPHOMA
     Dates: start: 20130311
  2. LOXAPAC [Concomitant]
     Indication: DISORIENTATION
  3. LOXAPAC [Concomitant]
     Indication: APHASIA
  4. LOXAPAC [Concomitant]
     Indication: BALANCE DISORDER
  5. LOXAPAC [Concomitant]
     Indication: AGITATION
  6. ETOPOSIDE TEVA [Suspect]
     Indication: CENTRAL NERVOUS SYSTEM LYMPHOMA
     Dates: start: 20130311
  7. CARBOPLATIN [Suspect]
     Dates: start: 20130311
  8. METHOTREXATE [Suspect]
     Indication: CENTRAL NERVOUS SYSTEM LYMPHOMA
     Dates: start: 20130311
  9. METHOTREXATE [Suspect]
     Dates: start: 20130311
  10. ARACYTINE [Suspect]
     Indication: CENTRAL NERVOUS SYSTEM LYMPHOMA
     Route: 037
     Dates: start: 20130311
  11. MABTHERA [Suspect]
     Indication: CENTRAL NERVOUS SYSTEM LYMPHOMA
     Dates: start: 20130311

REACTIONS (3)
  - Altered state of consciousness [Fatal]
  - Miosis [Unknown]
  - Confusional state [Unknown]
